FAERS Safety Report 8628524 (Version 5)
Quarter: 2012Q4

REPORT INFORMATION
  Report Type: 
  Country: JP (occurrence: JP)
  Receive Date: 20120621
  Receipt Date: 20120918
  Transmission Date: 20130627
  Serious: Yes (Other)
  Sender: FDA-Public Use
  Company Number: JP-GLAXOSMITHKLINE-B0808722A

PATIENT
  Age: 69 Year
  Sex: Female

DRUGS (6)
  1. SAMTIREL [Suspect]
     Indication: PNEUMOCYSTIS JIROVECI PNEUMONIA
     Dosage: 5ML Twice per day
     Route: 048
     Dates: start: 20120604, end: 20120619
  2. SAMTIREL [Suspect]
     Indication: PNEUMOCYSTIS JIROVECI PNEUMONIA
     Dosage: 10ML Alternate days
     Route: 048
     Dates: start: 20120620
  3. PREDNISOLONE [Suspect]
     Indication: PRODUCT USED FOR UNKNOWN INDICATION
     Dosage: 15MG Per day
     Route: 048
  4. GASTER [Concomitant]
     Dosage: 10MG Twice per day
     Route: 048
  5. MAGMITT [Concomitant]
     Dosage: 330MG Three times per day
     Route: 048
  6. BONALON [Concomitant]
     Route: 048

REACTIONS (2)
  - Blood bilirubin increased [Recovering/Resolving]
  - Hypokalaemia [Recovered/Resolved]
